FAERS Safety Report 4581113-0 (Version None)
Quarter: 2005Q1

REPORT INFORMATION
  Report Type: 
  Country: None (occurrence: None)
  Receive Date: 20050214
  Receipt Date: 20040809
  Transmission Date: 20050727
  Serious: Yes (Hospitalization, Other)
  Sender: FDA-Public Use
  Company Number: US-GLAXOSMITHKLINE-A0521542A

PATIENT
  Age: 43 Year
  Sex: Female

DRUGS (6)
  1. LAMICTAL [Suspect]
     Indication: PETIT MAL EPILEPSY
     Dosage: 25MG SEE DOSAGE TEXT
     Route: 048
     Dates: start: 20040629, end: 20040801
  2. VALPROIC ACID [Concomitant]
     Indication: EPILEPSY
     Dosage: 1500MG PER DAY
     Route: 048
  3. PHENOBARBITAL [Concomitant]
     Indication: PETIT MAL EPILEPSY
     Dosage: 90MG PER DAY
     Route: 048
  4. KEFLEX [Concomitant]
  5. MOTRIN [Concomitant]
  6. DEPAKOTE [Concomitant]
     Indication: PETIT MAL EPILEPSY

REACTIONS (9)
  - DYSPHAGIA [None]
  - HYPERSENSITIVITY [None]
  - LYMPHADENOPATHY [None]
  - ORAL SOFT TISSUE DISORDER [None]
  - PAIN [None]
  - PYREXIA [None]
  - RASH [None]
  - RASH MACULO-PAPULAR [None]
  - URTICARIA [None]
